FAERS Safety Report 8391741-2 (Version None)
Quarter: 2012Q2

REPORT INFORMATION
  Report Type: 
  Country: None (occurrence: None)
  Receive Date: 20120529
  Receipt Date: 20120522
  Transmission Date: 20120825
  Serious: Yes (Other)
  Sender: FDA-Public Use
  Company Number: JP-PFIZER INC-2012029443

PATIENT
  Age: 65 Year
  Sex: Female
  Weight: 57 kg

DRUGS (11)
  1. BASEN [Concomitant]
     Dosage: 0.3 MG, 3X/DAY
  2. BONALEN(ALENDRONATE SODIUM) [Concomitant]
     Dosage: 35 MG, WEEKLY
  3. NEORAL [Concomitant]
     Dosage: 75 MG, 2X/DAY
  4. PREDNISOLONE [Concomitant]
     Dosage: 17.5 MG, 2X/DAY
  5. METFORMIN HCL [Concomitant]
     Dosage: 250 MG, 3X/DAY
  6. LANSOPRAZOLE [Concomitant]
     Dosage: 15 MG, 1X/DAY
  7. CANDESARTAN CILEXETIL [Concomitant]
     Dosage: 4 MG, 1X/DAY
  8. VFEND [Suspect]
     Indication: BRONCHOPULMONARY ASPERGILLOSIS
     Dosage: UNK
     Route: 048
     Dates: start: 20111222
  9. LIPITOR [Interacting]
     Dosage: 10 MG, 1X/DAY
     Route: 048
  10. COTRIM [Concomitant]
     Dosage: 1 DF, 1X/DAY
  11. FUNGIZONE [Concomitant]
     Dosage: 2 MG, 2X/DAY

REACTIONS (4)
  - MEAN CELL VOLUME INCREASED [None]
  - ANAEMIA [None]
  - DRUG INTERACTION [None]
  - BLOOD TRIGLYCERIDES INCREASED [None]
